FAERS Safety Report 7435275-8 (Version None)
Quarter: 2011Q2

REPORT INFORMATION
  Report Type: 
  Country: None (occurrence: None)
  Receive Date: 20110425
  Receipt Date: 20110419
  Transmission Date: 20111010
  Serious: Yes (Other)
  Sender: FDA-Public Use
  Company Number: A0917311A

PATIENT
  Age: 62 Year
  Sex: Female
  Weight: 89.1 kg

DRUGS (5)
  1. ALLI [Suspect]
     Route: 048
     Dates: start: 20100101
  2. METFORMIN [Concomitant]
  3. VITAMIN B-12 [Concomitant]
  4. FISH OIL [Concomitant]
  5. BLOOD PRESSURE MEDICATION [Concomitant]

REACTIONS (2)
  - VAGINAL HAEMORRHAGE [None]
  - PRODUCT QUALITY ISSUE [None]
